FAERS Safety Report 7788791-3 (Version None)
Quarter: 2011Q3

REPORT INFORMATION
  Report Type: 
  Country: None (occurrence: None)
  Receive Date: 20110928
  Receipt Date: 20110915
  Transmission Date: 20111222
  Serious: Yes (Other)
  Sender: FDA-Public Use
  Company Number: AUR-APL-2011-05006

PATIENT
  Age: 61 Year
  Sex: Male
  Weight: 105.2 kg

DRUGS (9)
  1. DILTIAZEM HYDROCHLORIDE [Suspect]
     Indication: ATRIAL FIBRILLATION
     Dosage: 240 MG, 1 D, ORAL
     Route: 048
  2. ATORVASTATIN CALCIUM [Suspect]
     Indication: ATRIAL FIBRILLATION
     Dosage: 40 MG, 1 D, ORAL
     Route: 048
  3. EZETIMIBE [Concomitant]
  4. ASPIRIN [Concomitant]
  5. ATENOLOL [Concomitant]
  6. CITALOPRAM HYDROBROMIDE [Suspect]
     Indication: PRODUCT USED FOR UNKNOWN INDICATION
     Dosage: 10 MG, 1 D, ORAL
     Route: 048
  7. SIMVASTATIN [Suspect]
     Indication: PRODUCT USED FOR UNKNOWN INDICATION
     Dosage: 80 MG, 1 D
  8. PANTOPRAZOLE [Concomitant]
  9. TESTOSTERONE [Concomitant]

REACTIONS (16)
  - DYSKINESIA [None]
  - SENSORY DISTURBANCE [None]
  - EXAGGERATED STARTLE RESPONSE [None]
  - STEREOTYPY [None]
  - MUSCLE TWITCHING [None]
  - EXERCISE TOLERANCE DECREASED [None]
  - RESPIRATION ABNORMAL [None]
  - MYOCLONUS [None]
  - BALANCE DISORDER [None]
  - BLOOD GLUCOSE ABNORMAL [None]
  - TRANSFERRIN SATURATION DECREASED [None]
  - SLEEP APNOEA SYNDROME [None]
  - IRON BINDING CAPACITY TOTAL INCREASED [None]
  - PERIODIC LIMB MOVEMENT DISORDER [None]
  - DRUG INTERACTION [None]
  - SERUM FERRITIN DECREASED [None]
